FAERS Safety Report 6385636-3 (Version None)
Quarter: 2009Q4

REPORT INFORMATION
  Report Type: 
  Country: None (occurrence: None)
  Receive Date: 20091002
  Receipt Date: 20081013
  Transmission Date: 20100525
  Serious: No
  Sender: FDA-Public Use
  Company Number: US-ASTRAZENECA-2008UW22376

PATIENT
  Age: 61 Year
  Sex: Female
  Weight: 56.2 kg

DRUGS (5)
  1. ARIMIDEX [Suspect]
     Indication: BREAST CANCER
     Route: 048
     Dates: start: 20061001
  2. TRICOR [Concomitant]
  3. SIMVASTATIN [Concomitant]
     Dosage: 10 MG
  4. LISINOPRIL [Concomitant]
     Dosage: 5 MG
  5. TRIAMTERENE [Concomitant]

REACTIONS (2)
  - CONFUSIONAL STATE [None]
  - DRUG DOSE OMISSION [None]
